FAERS Safety Report 15352815 (Version 3)
Quarter: 2019Q2

REPORT INFORMATION
  Report Type: Spontaneous
  Country: JP (occurrence: JP)
  Receive Date: 20180905
  Receipt Date: 20190523
  Transmission Date: 20190711
  Serious: Yes (Death, Hospitalization)
  Sender: FDA-Public Use
  Company Number: JP-EISAI MEDICAL RESEARCH-EC-2018-044680

PATIENT
  Sex: Male
  Weight: 56 kg

DRUGS (4)
  1. HALAVEN [Suspect]
     Active Substance: ERIBULIN MESYLATE
     Dosage: DOSE DECREASED BY 30% OF USUAL DOSE
     Route: 041
     Dates: start: 2019, end: 201903
  2. VOTRIENT [Suspect]
     Active Substance: PAZOPANIB HYDROCHLORIDE
     Indication: PRODUCT USED FOR UNKNOWN INDICATION
     Dosage: DOSE AND FREQUENCY UNKNOWN
     Route: 065
     Dates: start: 2018, end: 2018
  3. HALAVEN [Suspect]
     Active Substance: ERIBULIN MESYLATE
     Dosage: DOSE UNKNOWN
     Route: 041
     Dates: start: 201811
  4. HALAVEN [Suspect]
     Active Substance: ERIBULIN MESYLATE
     Indication: SYNOVIAL SARCOMA
     Route: 041
     Dates: start: 20180604, end: 20180725

REACTIONS (1)
  - Pneumothorax [Recovered/Resolved]

NARRATIVE: CASE EVENT DATE: 20180801
